FAERS Safety Report 6267741-5 (Version None)
Quarter: 2009Q3

REPORT INFORMATION
  Report Type: 
  Country: None (occurrence: None)
  Receive Date: 20090710
  Receipt Date: 20090625
  Transmission Date: 20100115
  Serious: Yes (Hospitalization)
  Sender: FDA-Public Use
  Company Number: DSM-2009-00862

PATIENT
  Age: 89 Year
  Sex: Female
  Weight: 77 kg

DRUGS (1)
  1. OLMESARTAN MEDOXOMIL [Suspect]
     Indication: HYPERTENSION
     Dosage: 20 MG, ORAL
     Route: 048
     Dates: start: 20070906, end: 20071029

REACTIONS (2)
  - HYPOTENSION [None]
  - LEFT VENTRICULAR DYSFUNCTION [None]
